FAERS Safety Report 5452743-9 (Version None)
Quarter: 2007Q3

REPORT INFORMATION
  Report Type: 
  Country: None (occurrence: None)
  Receive Date: 20070914
  Receipt Date: 20070910
  Transmission Date: 20080115
  Serious: Yes (Hospitalization)
  Sender: FDA-Public Use
  Company Number: US-SANOFI-SYNTHELABO-F01200701115

PATIENT
  Sex: Female

DRUGS (4)
  1. LEUCOVORIN [Suspect]
     Dosage: UNK
  2. FLUOROURACIL INJ [Suspect]
     Dosage: UNK
  3. BEVACIZUMAB [Suspect]
     Route: 041
     Dates: start: 20070410, end: 20070410
  4. OXALIPLATIN [Suspect]
     Indication: COLORECTAL CANCER
     Dosage: UNK

REACTIONS (3)
  - ANAEMIA [None]
  - CHRONIC OBSTRUCTIVE PULMONARY DISEASE [None]
  - SEPSIS [None]
